FAERS Safety Report 11936498 (Version 1)
Quarter: 2016Q1

REPORT INFORMATION
  Report Type: Spontaneous
  Country: JP (occurrence: JP)
  Receive Date: 20160121
  Receipt Date: 20160121
  Transmission Date: 20160526
  Serious: Yes (Hospitalization)
  Sender: FDA-Public Use
  Company Number: PHBS1999JP08753

PATIENT
  Age: 50 Year
  Sex: Female
  Weight: 38 kg

DRUGS (6)
  1. RESTAS [Concomitant]
     Route: 065
  2. AMOXAN [Concomitant]
     Active Substance: AMOXAPINE
     Route: 065
     Dates: start: 19990413, end: 19990423
  3. CONSTAN [Concomitant]
     Active Substance: ALPRAZOLAM
     Route: 065
  4. ANAFRANIL [Suspect]
     Active Substance: CLOMIPRAMINE HYDROCHLORIDE
     Route: 048
     Dates: start: 19990413, end: 19990423
  5. PUSENNID [Suspect]
     Active Substance: SENNOSIDES A AND B
     Route: 048
     Dates: start: 19990420, end: 19990423
  6. ROHYPNOL [Concomitant]
     Active Substance: FLUNITRAZEPAM
     Route: 065

REACTIONS (4)
  - Erythema [Recovered/Resolved]
  - Insomnia [Recovered/Resolved]
  - Constipation [Recovered/Resolved]
  - Drug eruption [None]

NARRATIVE: CASE EVENT DATE: 19990421
